FAERS Safety Report 16649606 (Version 2)
Quarter: 2020Q1

REPORT INFORMATION
  Report Type: Report from Study
  Country: US (occurrence: US)
  Receive Date: 20190730
  Receipt Date: 20200129
  Transmission Date: 20200409
  Serious: Yes (Other)
  Sender: FDA-Public Use
  Company Number: PHEH2019US031092

PATIENT
  Sex: Female

DRUGS (1)
  1. GILENYA [Suspect]
     Active Substance: FINGOLIMOD HYDROCHLORIDE
     Indication: MULTIPLE SCLEROSIS
     Dosage: 0.5 MG, QD
     Route: 048

REACTIONS (6)
  - Blood sodium decreased [Unknown]
  - Precancerous skin lesion [Unknown]
  - Basal cell carcinoma [Unknown]
  - Weight fluctuation [Unknown]
  - Blood potassium decreased [Unknown]
  - White blood cell count decreased [Unknown]
